FAERS Safety Report 9468865 (Version 1)
Quarter: 2013Q3

REPORT INFORMATION
  Report Type: Spontaneous
  Country: US (occurrence: US)
  Receive Date: 20130821
  Receipt Date: 20130821
  Transmission Date: 20140515
  Serious: Yes (Hospitalization)
  Sender: FDA-Public Use
  Company Number: US-B.I. PHARMACEUTICALS,INC./RIDGEFIELD-2013-BI-25515BP

PATIENT
  Sex: Male

DRUGS (11)
  1. PRADAXA [Suspect]
     Indication: ATRIAL FIBRILLATION
     Dosage: 300 MG
     Route: 048
     Dates: start: 20130805, end: 20130807
  2. FLOMAX CAPSULES [Suspect]
     Indication: BENIGN PROSTATIC HYPERPLASIA
     Dosage: 0.4 MG
     Route: 048
     Dates: end: 20130805
  3. FLOMAX CAPSULES [Suspect]
     Dosage: 0.4 MG
     Route: 048
     Dates: start: 20130807
  4. AMIODARONE [Concomitant]
     Indication: PALPITATIONS
     Dosage: 800 MG
     Route: 048
  5. LISINOPRIL [Concomitant]
     Indication: HYPERTENSION
     Dosage: 5 MG
     Route: 048
  6. CARDIZEM [Concomitant]
     Indication: PALPITATIONS
     Dosage: 180 MG
     Route: 048
     Dates: start: 20130806
  7. VITAMIN D [Concomitant]
     Dosage: STRENGTH: 50,000 UNITS;
     Route: 048
     Dates: start: 20130805
  8. PEPSID [Concomitant]
     Dosage: 20 MG
     Route: 048
     Dates: start: 20130805, end: 20130807
  9. AVODART [Concomitant]
     Indication: BENIGN PROSTATIC HYPERPLASIA
     Dosage: 0.5 MG
     Route: 048
  10. LASIX [Concomitant]
     Dosage: FORM:(INTRAVENOUS)
     Route: 042
  11. COREG [Concomitant]
     Indication: PALPITATIONS
     Dosage: 12.5 MG
     Route: 048

REACTIONS (3)
  - Gastrointestinal haemorrhage [Unknown]
  - Carcinoid tumour [Unknown]
  - Palpitations [Unknown]
